FAERS Safety Report 12957783 (Version 2)
Quarter: 2016Q4

REPORT INFORMATION
  Report Type: Report from Study
  Country: AU (occurrence: AU)
  Receive Date: 20161118
  Receipt Date: 20161218
  Transmission Date: 20170207
  Serious: Yes (Other)
  Sender: FDA-Public Use
  Company Number: AU-REGENERON PHARMACEUTICALS, INC.-2016-24010

PATIENT

DRUGS (1)
  1. EYLEA [Suspect]
     Active Substance: AFLIBERCEPT
     Indication: DIABETIC RETINAL OEDEMA
     Dosage: 2 MG, Q6WK, NUMBER OF INJECTIONS RECEIVED NOT PROVIDED
     Route: 031
     Dates: start: 20150929

REACTIONS (2)
  - Product use issue [Unknown]
  - Visual impairment [Unknown]
